FAERS Safety Report 16069347 (Version 1)
Quarter: 2019Q1

REPORT INFORMATION
  Report Type: Report from Study
  Country: GR (occurrence: GR)
  Receive Date: 20190313
  Receipt Date: 20190313
  Transmission Date: 20190418
  Serious: Yes (Death, Life-Threatening, Other)
  Sender: FDA-Public Use
  Company Number: GR-AMGEN-GRCNI2019037501

PATIENT
  Age: 11 Month
  Sex: Male

DRUGS (2)
  1. BLINATUMOMAB [Suspect]
     Active Substance: BLINATUMOMAB
     Indication: ACUTE LYMPHOCYTIC LEUKAEMIA REFRACTORY
     Dosage: UNK
     Route: 065
     Dates: start: 20170909, end: 20170909
  2. BLINATUMOMAB [Suspect]
     Active Substance: BLINATUMOMAB
     Dosage: 45 MICROGRAM/KILOGRAM (TRIPLE DOSE), QD
     Route: 065
     Dates: start: 20171219, end: 20171219

REACTIONS (4)
  - Therapy non-responder [Unknown]
  - Fungal infection [Unknown]
  - Disease progression [Fatal]
  - Bacteraemia [Unknown]

NARRATIVE: CASE EVENT DATE: 20170929
